FAERS Safety Report 8310196-7 (Version None)
Quarter: 2012Q2

REPORT INFORMATION
  Report Type: 
  Country: None (occurrence: None)
  Receive Date: 20120425
  Receipt Date: 20120418
  Transmission Date: 20120825
  Serious: Yes (Hospitalization)
  Sender: FDA-Public Use
  Company Number: US-BAYER-2012-039342

PATIENT
  Age: 22 Year
  Sex: Female

DRUGS (8)
  1. AMOXICILLIN [Concomitant]
     Dosage: 875 MG, BID
     Route: 048
     Dates: start: 20071227
  2. SULFAMETHOXAZOLE + TRIMETHOPRIM [Concomitant]
     Dosage: UNK UNK, BID
     Route: 048
     Dates: start: 20071003
  3. FLUTICASONE FUROATE [Concomitant]
     Dosage: UNK UNK, QD
     Route: 045
     Dates: start: 20071227
  4. PROMETHEGAN [Concomitant]
     Indication: NAUSEA
     Dosage: 25 MG, QID
     Route: 054
     Dates: start: 20070901
  5. PROMETHEGAN [Concomitant]
     Indication: VOMITING
  6. YASMIN [Suspect]
     Route: 048
  7. MECLIZINE [Concomitant]
  8. CEFACLOR [Concomitant]
     Indication: URINARY TRACT INFECTION
     Dosage: 500 MG, Q3WK
     Route: 048
     Dates: start: 20070901

REACTIONS (1)
  - DEEP VEIN THROMBOSIS [None]
